FAERS Safety Report 5925815-X (Version None)
Quarter: 2008Q4

REPORT INFORMATION
  Report Type: 
  Country: None (occurrence: None)
  Receive Date: 20081021
  Receipt Date: 20081009
  Transmission Date: 20090506
  Serious: Yes (Other)
  Sender: FDA-Public Use
  Company Number: US-PFIZER INC-2008073134

PATIENT
  Sex: Female
  Weight: 70.909 kg

DRUGS (2)
  1. DETROL LA [Suspect]
     Indication: HYPERTONIC BLADDER
  2. ALL OTHER THERAPEUTIC PRODUCTS [Concomitant]
     Indication: FIBROMYALGIA

REACTIONS (5)
  - BLOOD CHOLESTEROL INCREASED [None]
  - FEELING ABNORMAL [None]
  - GLAUCOMA [None]
  - THINKING ABNORMAL [None]
  - UNEVALUABLE EVENT [None]
